FAERS Safety Report 13553190 (Version 1)
Quarter: 2017Q2

REPORT INFORMATION
  Report Type: Spontaneous
  Country: US (occurrence: US)
  Receive Date: 20170516
  Receipt Date: 20170516
  Transmission Date: 20170830
  Serious: Yes (Hospitalization)
  Sender: FDA-Public Use
  Company Number: None

PATIENT
  Age: 69 Year
  Sex: Female
  Weight: 69.75 kg

DRUGS (4)
  1. VITAMIN C [Concomitant]
     Active Substance: ASCORBIC ACID
  2. ZETIA [Suspect]
     Active Substance: EZETIMIBE
     Indication: LIPIDS INCREASED
     Route: 048
  3. OMEGA 3 [Concomitant]
     Active Substance: OMEGA-3 FATTY ACIDS
  4. ZETIA [Suspect]
     Active Substance: EZETIMIBE
     Indication: HIGH DENSITY LIPOPROTEIN DECREASED
     Route: 048

REACTIONS (5)
  - Cerebrovascular accident [None]
  - Asthenia [None]
  - Haemoglobin decreased [None]
  - Faeces discoloured [None]
  - Constipation [None]

NARRATIVE: CASE EVENT DATE: 20170504
